FAERS Safety Report 17178841 (Version 1)
Quarter: 2019Q4

REPORT INFORMATION
  Report Type: Report from Study
  Country: ES (occurrence: ES)
  Receive Date: 20191219
  Receipt Date: 20191219
  Transmission Date: 20200122
  Serious: Yes (Hospitalization)
  Sender: FDA-Public Use
  Company Number: ES-TEVA-2019-ES-1152824

PATIENT
  Age: 55 Year
  Sex: Female
  Weight: 52 kg

DRUGS (7)
  1. CICLOSERINA (595A) [Suspect]
     Active Substance: CYCLOSERINE
     Indication: TUBERCULOSIS
     Dosage: 750 MG DAILY
     Route: 048
     Dates: start: 20180418, end: 20180518
  2. RIFAMPICINA (2273A) [Suspect]
     Active Substance: RIFAMPIN
     Indication: TUBERCULOSIS
     Dosage: 300MG 2 DAY COMP
     Route: 048
     Dates: start: 20180426, end: 20180516
  3. AMIKACINA (372A) [Suspect]
     Active Substance: AMIKACIN
     Indication: TUBERCULOSIS
     Dosage: 1500MG A DAY
     Route: 042
     Dates: start: 20180419, end: 20180511
  4. ETHAMBUTOL [Suspect]
     Active Substance: ETHAMBUTOL HYDROCHLORIDE
     Indication: TUBERCULOSIS
     Dosage: 1200MG A DAY
     Route: 048
     Dates: start: 20180418, end: 20180518
  5. ESPIRONOLACTONA (326A) [Concomitant]
     Active Substance: SPIRONOLACTONE
     Indication: ASCITES
     Dosage: 100MG A DAY
     Route: 048
     Dates: start: 20180418, end: 20180511
  6. MOXIFLOXACINO (1119A) [Suspect]
     Active Substance: MOXIFLOXACIN HYDROCHLORIDE
     Indication: TUBERCULOSIS
     Dosage: 800 MILLIGRAM PER DAY
     Route: 048
     Dates: start: 20180418, end: 20180518
  7. BENADON 300 MG COMPRIMIDOS RECUBIERTOS CON PELICULA, 20 COMPRIMIDOS [Concomitant]
     Indication: TUBERCULOSIS
     Dosage: 300MG MONDAY AND THURSDAY
     Route: 048
     Dates: start: 20180425, end: 20180518

REACTIONS (1)
  - Drug reaction with eosinophilia and systemic symptoms [Recovered/Resolved]

NARRATIVE: CASE EVENT DATE: 20180513
